FAERS Safety Report 5423125-0 (Version None)
Quarter: 2007Q3

REPORT INFORMATION
  Report Type: 
  Country: None (occurrence: None)
  Receive Date: 20070821
  Receipt Date: 20070808
  Transmission Date: 20080115
  Serious: Yes (Death)
  Sender: FDA-Public Use
  Company Number: S07-FRA-03437-01

PATIENT
  Age: 65 Year
  Sex: Female

DRUGS (4)
  1. AOTAL (ACAMPROSATE) [Suspect]
     Indication: ALCOHOLISM
     Dosage: 666 MG TID PO
     Route: 048
     Dates: start: 20070402, end: 20070502
  2. DISULFIRAM [Suspect]
     Indication: ALCOHOLISM
     Dosage: 500 MG QD PO
     Route: 048
     Dates: start: 20070402, end: 20070502
  3. ATORVASTATIN CALCIUM [Suspect]
     Indication: HYPERCHOLESTEROLAEMIA
     Dosage: 10 MG QD PO
     Route: 048
     Dates: start: 20070502, end: 20070502
  4. XANAX [Suspect]
     Dosage: 0.125 MG TID PO
     Route: 048
     Dates: start: 20070402, end: 20070502

REACTIONS (3)
  - FOCAL NODULAR HYPERPLASIA [None]
  - HEPATIC FAILURE [None]
  - HEPATITIS FULMINANT [None]
